FAERS Safety Report 20932035 (Version 14)
Quarter: 2023Q4

REPORT INFORMATION
  Report Type: Spontaneous
  Country: US (occurrence: US)
  Receive Date: 20220608
  Receipt Date: 20231228
  Transmission Date: 20240110
  Serious: No
  Sender: FDA-Public Use
  Company Number: US-PFIZER INC-202200797879

PATIENT
  Age: 72 Year
  Sex: Female
  Weight: 64.86 kg

DRUGS (4)
  1. BRAFTOVI [Suspect]
     Active Substance: ENCORAFENIB
     Indication: Malignant melanoma stage IV
     Dosage: 75 MG
     Route: 048
     Dates: start: 20220331
  2. BRAFTOVI [Suspect]
     Active Substance: ENCORAFENIB
     Indication: Breast cancer
     Dosage: 75MG 6 CAPSULES AT THE SAME TIME DAILY BY MOUTH
     Route: 048
  3. MEKTOVI [Suspect]
     Active Substance: BINIMETINIB
     Indication: Malignant melanoma stage IV
     Dosage: 15 MG
     Dates: start: 20220331
  4. MEKTOVI [Suspect]
     Active Substance: BINIMETINIB
     Indication: Breast cancer
     Dosage: 45 MG, 2X/DAY (15MG 3 IN THE MORNING AND 3 IN THE EVENING BY MOUTH)
     Route: 048

REACTIONS (6)
  - Poor quality product administered [Unknown]
  - Product physical issue [Unknown]
  - Ageusia [Unknown]
  - COVID-19 [Unknown]
  - Product taste abnormal [Unknown]
  - Off label use [Unknown]

NARRATIVE: CASE EVENT DATE: 20220331
